FAERS Safety Report 5982147-1 (Version None)
Quarter: 2008Q4

REPORT INFORMATION
  Report Type: 
  Country: None (occurrence: None)
  Receive Date: 20081203
  Receipt Date: 20081125
  Transmission Date: 20090506
  Serious: Yes (Death)
  Sender: FDA-Public Use
  Company Number: US025090

PATIENT
  Age: 38 Year
  Sex: Male
  Weight: 69.8539 kg

DRUGS (10)
  1. PROVIGIL [Suspect]
     Indication: HYPERSOMNIA
     Dosage: 200 MG  ORAL
     Route: 048
     Dates: start: 20081113, end: 20081117
  2. OXYCONTIN [Suspect]
     Indication: PAIN
     Dosage: 20 MG QD ORAL
     Route: 048
     Dates: end: 20081117
  3. CIALIS [Concomitant]
  4. PROPOXYPHENE HYDROCHLORIDE [Concomitant]
  5. VIAGRA [Concomitant]
  6. FLEXERIL [Concomitant]
  7. LIBRIUM /00011501/ [Concomitant]
  8. MARIJUANA [Concomitant]
  9. METHAMPHETAMINE HYDROCHLORIDE [Concomitant]
  10. COCAINE [Concomitant]

REACTIONS (2)
  - CARDIAC FIBRILLATION [None]
  - DRUG SCREEN POSITIVE [None]
